FAERS Safety Report 6496939-6 (Version None)
Quarter: 2009Q4

REPORT INFORMATION
  Report Type: 
  Country: None (occurrence: None)
  Receive Date: 20091215
  Receipt Date: 20091005
  Transmission Date: 20100525
  Serious: No
  Sender: FDA-Public Use
  Company Number: A0721369A

PATIENT
  Age: 74 Year
  Sex: Male

DRUGS (6)
  1. AVODART [Suspect]
     Indication: BENIGN PROSTATIC HYPERPLASIA
     Dosage: 1CAP PER DAY
     Route: 048
     Dates: end: 20090501
  2. SAW PALMETTO [Suspect]
     Indication: DRUG USE FOR UNKNOWN INDICATION
     Route: 065
  3. BETA SITOSTEROL [Suspect]
     Indication: DRUG USE FOR UNKNOWN INDICATION
     Route: 065
  4. TESTOSTERONE [Concomitant]
  5. FLOMAX [Concomitant]
  6. ANTIOXIDANT [Concomitant]

REACTIONS (6)
  - DRUG INEFFECTIVE [None]
  - DYSURIA [None]
  - MICTURITION URGENCY [None]
  - POLLAKIURIA [None]
  - PROSTATOMEGALY [None]
  - URINE FLOW DECREASED [None]
